FAERS Safety Report 25881521 (Version 3)
Quarter: 2025Q4

REPORT INFORMATION
  Report Type: Report from Study
  Country: EU (occurrence: EU)
  Receive Date: 20251005
  Receipt Date: 20251024
  Transmission Date: 20260117
  Serious: Yes (Other)
  Sender: AUROBINDO
  Company Number: EU-ASPEN-GLO2025NL008338

PATIENT
  Age: 74 Year
  Sex: Female
  Weight: 62 kg

DRUGS (2)
  1. BUPIVACAINE [Suspect]
     Active Substance: BUPIVACAINE
     Indication: Epidural analgesia
     Dosage: UNK
     Route: 008
  2. PAROXETINE [Suspect]
     Active Substance: PAROXETINE
     Indication: Product used for unknown indication
     Route: 065

REACTIONS (2)
  - Spinal cord compression [Unknown]
  - Post procedural haematoma [Unknown]
